FAERS Safety Report 5618268-2 (Version None)
Quarter: 2008Q1

REPORT INFORMATION
  Report Type: 
  Country: None (occurrence: None)
  Receive Date: 20080207
  Receipt Date: 20080128
  Transmission Date: 20080703
  Serious: Yes (Other)
  Sender: FDA-Public Use
  Company Number: US-ROCHE-526650

PATIENT
  Age: 78 Year
  Sex: Female
  Weight: 68 kg

DRUGS (12)
  1. BONIVA [Suspect]
     Indication: OSTEOPOROSIS
     Route: 048
     Dates: start: 20060101
  2. PENTASA [Concomitant]
  3. ATENOLOL [Concomitant]
  4. LOMOTIL [Concomitant]
     Dosage: DOSING: AS NEEDED
  5. ZANTAC [Concomitant]
     Dosage: DOSING: AS NEEDED
  6. LACTOSE [Concomitant]
     Dosage: DOSING: AS NEEDED
  7. CALCIUM/VITAMIN D [Concomitant]
  8. VITAMIN E [Concomitant]
  9. VITAMIN B-12 [Concomitant]
  10. BETACAROTENE [Concomitant]
  11. ASPIRIN [Concomitant]
  12. ASCORBIC ACID [Concomitant]

REACTIONS (1)
  - OSTEONECROSIS [None]
